FAERS Safety Report 17261503 (Version 1)
Quarter: 2020Q1

REPORT INFORMATION
  Report Type: Report from Study
  Country: None (occurrence: IT)
  Receive Date: 20200113
  Receipt Date: 20200113
  Transmission Date: 20200409
  Serious: Yes (Hospitalization)
  Sender: FDA-Public Use
  Company Number: IT-ABBVIE-20K-083-3230125-00

PATIENT
  Age: 67 Year
  Sex: Male

DRUGS (4)
  1. IMBRUVICA [Suspect]
     Active Substance: IBRUTINIB
     Indication: CHRONIC MYELOID LEUKAEMIA
     Route: 048
     Dates: start: 20190725, end: 20190804
  2. PANTORC [Concomitant]
     Active Substance: PANTOPRAZOLE SODIUM
     Indication: GASTRIC ULCER
     Dosage: PANTORC 40 MG GASTRORESISTANT TABLETS
     Route: 048
  3. CARDIOASPIRIN [Concomitant]
     Active Substance: ASPIRIN
     Indication: HYPERTENSIVE HEART DISEASE
     Dosage: CARDIOASPIRIN 100 MG MG GASTRORESISTANT TABLETS
     Route: 048
  4. ZYLORIC [Concomitant]
     Active Substance: ALLOPURINOL
     Indication: GOUT
     Dosage: ZYLORIC 300 MG COMPRESSE
     Route: 048
     Dates: start: 20190725

REACTIONS (6)
  - Myalgia [Recovering/Resolving]
  - Oropharyngeal pain [Recovering/Resolving]
  - Hyperkalaemia [Recovering/Resolving]
  - Hyperpyrexia [Recovering/Resolving]
  - Pain [Recovering/Resolving]
  - Chronic lymphocytic leukaemia [Recovering/Resolving]

NARRATIVE: CASE EVENT DATE: 20190804
